FAERS Safety Report 7884265-X (Version None)
Quarter: 2011Q4

REPORT INFORMATION
  Report Type: 
  Country: None (occurrence: None)
  Receive Date: 20111102
  Receipt Date: 20111027
  Transmission Date: 20120403
  Serious: Yes (Hospitalization, Other)
  Sender: FDA-Public Use
  Company Number: US-PFIZER INC-2011263764

PATIENT
  Sex: Female
  Weight: 62.585 kg

DRUGS (6)
  1. NIASPAN [Suspect]
     Indication: BLOOD CHOLESTEROL
     Dosage: 500 MG, UNK
     Dates: start: 20090101, end: 20100101
  2. CORDARONE [Suspect]
     Dosage: UNK
  3. ATORVASTATIN CALCIUM [Concomitant]
     Indication: BLOOD CHOLESTEROL
     Dosage: UNK
  4. NIASPAN [Suspect]
     Dosage: 500 MG, UNK
     Dates: start: 20100101
  5. DIGOXIN [Concomitant]
     Dosage: UNK
  6. CARVEDILOL [Concomitant]
     Indication: BLOOD PRESSURE
     Dosage: UNK

REACTIONS (4)
  - HEPATIC ENZYME INCREASED [None]
  - NAUSEA [None]
  - DIARRHOEA [None]
  - VOMITING [None]
